FAERS Safety Report 9466532 (Version 1)
Quarter: 2013Q3

REPORT INFORMATION
  Report Type: Report from Study
  Country: CA (occurrence: CA)
  Receive Date: 20130820
  Receipt Date: 20130820
  Transmission Date: 20140515
  Serious: Yes (Other)
  Sender: FDA-Public Use
  Company Number: CA-JNJFOC-20130807682

PATIENT
  Age: 23 Year
  Sex: Female
  Weight: 70.4 kg

DRUGS (4)
  1. REMICADE [Suspect]
     Indication: CROHN^S DISEASE
     Route: 042
     Dates: start: 20130117
  2. IMURAN [Concomitant]
     Route: 065
  3. BUSCOPAN [Concomitant]
     Route: 065
  4. ETHINYLESTRADIOL/LEVONORGESTREL [Concomitant]
     Route: 065

REACTIONS (1)
  - Irritable bowel syndrome [Recovered/Resolved]
